FAERS Safety Report 6387236-8 (Version None)
Quarter: 2009Q3

REPORT INFORMATION
  Report Type: 
  Country: None (occurrence: None)
  Receive Date: 20090928
  Receipt Date: 20090918
  Transmission Date: 20100115
  Serious: No
  Sender: FDA-Public Use
  Company Number: 2009008334

PATIENT
  Sex: Female
  Weight: 48.0813 kg

DRUGS (2)
  1. FENTORA [Suspect]
     Indication: PAIN
     Dosage: (400 MCG), BU; 1600 MCG, BU
     Route: 002
  2. FENTANYL-100 [Concomitant]

REACTIONS (2)
  - DRUG INEFFECTIVE [None]
  - DRUG PRESCRIBING ERROR [None]
